FAERS Safety Report 8857624 (Version 3)
Quarter: 2012Q4

REPORT INFORMATION
  Report Type: 
  Country: US (occurrence: US)
  Receive Date: 20121024
  Receipt Date: 20121219
  Transmission Date: 20130627
  Serious: Yes (Disabling)
  Sender: FDA-Public Use
  Company Number: US-JNJFOC-20120911555

PATIENT
  Sex: Female
  Weight: 77.11 kg

DRUGS (5)
  1. XARELTO [Suspect]
     Indication: CEREBROVASCULAR ACCIDENT PROPHYLAXIS
     Route: 048
     Dates: start: 20120808, end: 20120906
  2. XARELTO [Suspect]
     Indication: ATRIAL FIBRILLATION
     Route: 048
     Dates: start: 20120808, end: 20120906
  3. SYNTHROID [Concomitant]
     Indication: HYPOTHYROIDISM
  4. SPIRONOLACTONE [Concomitant]
     Indication: FLUID RETENTION
  5. MULTIVITAMINS [Concomitant]

REACTIONS (3)
  - Drug eruption [Recovering/Resolving]
  - Rash maculo-papular [Recovered/Resolved]
  - Pruritus generalised [Recovered/Resolved]
